FAERS Safety Report 6402496-2 (Version None)
Quarter: 2009Q4

REPORT INFORMATION
  Report Type: 
  Country: None (occurrence: None)
  Receive Date: 20091015
  Receipt Date: 20091005
  Transmission Date: 20100525
  Serious: Yes (Death)
  Sender: FDA-Public Use
  Company Number: AU-GENENTECH-292216

PATIENT

DRUGS (2)
  1. MABTHERA [Suspect]
     Indication: LYMPHOMA
  2. MYCOPHENOLATE MOFETIL [Suspect]
     Indication: DRUG USE FOR UNKNOWN INDICATION
     Route: 065

REACTIONS (2)
  - CRYOGLOBULINAEMIA [None]
  - MALIGNANT NEOPLASM PROGRESSION [None]
